FAERS Safety Report 7624793-5 (Version None)
Quarter: 2011Q3

REPORT INFORMATION
  Report Type: 
  Country: None (occurrence: None)
  Receive Date: 20110720
  Receipt Date: 20110711
  Transmission Date: 20111222
  Serious: Yes (Hospitalization, Other)
  Sender: FDA-Public Use
  Company Number: US-ASTRAZENECA-2011SE30931

PATIENT
  Sex: Female

DRUGS (6)
  1. SEROQUEL XR [Suspect]
     Route: 048
  2. SEROQUEL XR [Suspect]
     Route: 048
     Dates: start: 20100101
  3. ZOLOFT [Concomitant]
  4. SEROQUEL XR [Suspect]
     Route: 048
     Dates: start: 20110701
  5. KLONOPIN [Concomitant]
     Dosage: AS REQUIRED
  6. SEROQUEL XR [Suspect]
     Indication: DEPRESSION
     Route: 048

REACTIONS (8)
  - INFLUENZA LIKE ILLNESS [None]
  - SOMNOLENCE [None]
  - DRUG DOSE OMISSION [None]
  - TRANSIENT ISCHAEMIC ATTACK [None]
  - SPINAL FRACTURE [None]
  - PALPITATIONS [None]
  - VOMITING [None]
  - DRUG EFFECT INCREASED [None]
